FAERS Safety Report 7276608-5 (Version None)
Quarter: 2011Q1

REPORT INFORMATION
  Report Type: 
  Country: None (occurrence: None)
  Receive Date: 20110204
  Receipt Date: 20110131
  Transmission Date: 20110831
  Serious: Yes (Other)
  Sender: FDA-Public Use
  Company Number: TR-GILEAD-2011-0034804

PATIENT
  Sex: Male
  Weight: 75 kg

DRUGS (4)
  1. METFORMIN HCL [Concomitant]
     Indication: DIABETES MELLITUS
     Route: 048
  2. GLIKAZIDE [Concomitant]
     Indication: DIABETES MELLITUS
     Route: 048
  3. VIREAD [Suspect]
     Indication: HEPATITIS B
     Route: 048
  4. GLIFIX [Concomitant]
     Indication: DIABETES MELLITUS
     Route: 048

REACTIONS (1)
  - OSTEOPOROSIS [None]
